FAERS Safety Report 20993544 (Version 2)
Quarter: 2023Q2

REPORT INFORMATION
  Report Type: Report from Study
  Country: CN (occurrence: CN)
  Receive Date: 20220622
  Receipt Date: 20230407
  Transmission Date: 20230722
  Serious: Yes (Hospitalization)
  Sender: FDA-Public Use
  Company Number: CN-NOVARTISPH-NVSC2022CN142290

PATIENT
  Age: 32 Year
  Sex: Female
  Weight: 60 kg

DRUGS (7)
  1. TASIGNA [Suspect]
     Active Substance: NILOTINIB
     Indication: Chronic myeloid leukaemia
     Dosage: 300 MG, BID
     Route: 048
     Dates: start: 20200930, end: 20220519
  2. TASIGNA [Suspect]
     Active Substance: NILOTINIB
     Dosage: 300 MG, BID
     Route: 048
     Dates: start: 20220525
  3. ETHAMSYLATE [Suspect]
     Active Substance: ETHAMSYLATE
     Indication: Heavy menstrual bleeding
     Dosage: 2 G, QD (2 G, IVGTT, QD)
     Route: 065
     Dates: start: 20220518, end: 20220521
  4. BATROXOBIN [Suspect]
     Active Substance: BATROXOBIN
     Indication: Heavy menstrual bleeding
     Dosage: 1 KIU, BID (1 KU, IVGTT, BID)
     Route: 042
     Dates: start: 20220518, end: 20220521
  5. VITAMIN C [Suspect]
     Active Substance: ASCORBIC ACID
     Indication: Anaemia
     Dosage: 3 G, QD (3 G, IV GIT, QD)
     Route: 042
     Dates: start: 20220518, end: 20220521
  6. INOSINE [Suspect]
     Active Substance: INOSINE
     Indication: Heavy menstrual bleeding
     Dosage: 0.2 G, QD (0.2 G, IVGTT, QD)
     Route: 065
     Dates: start: 20220518, end: 20220523
  7. FERRIC POLYSACCHARIDE COMPLEX [Suspect]
     Active Substance: FERRIC POLYSACCHARIDE COMPLEX
     Indication: Anaemia
     Dosage: UNK(0.15G, PO, BID)
     Route: 065
     Dates: start: 20220522, end: 20220530

REACTIONS (1)
  - Heavy menstrual bleeding [Recovered/Resolved]

NARRATIVE: CASE EVENT DATE: 20220515
